FAERS Safety Report 19653016 (Version 1)
Quarter: 2021Q3

REPORT INFORMATION
  Report Type: Spontaneous
  Country: GB (occurrence: GB)
  Receive Date: 20210803
  Receipt Date: 20210803
  Transmission Date: 20211014
  Serious: Yes (Hospitalization)
  Sender: FDA-Public Use
  Company Number: GB-PERRIGO-21GB010342

PATIENT

DRUGS (11)
  1. DIORALYTE [Concomitant]
     Active Substance: CITRIC ACID MONOHYDRATE\DEXTROSE\POTASSIUM CATION\SODIUM CHLORIDE
     Dosage: DISSOLVE ONE SACHET IN 200ML OF WATER AND TAKE AS OFTEN AS DIRECTED 20 SACHET
     Dates: start: 20201020
  2. DOCUSATE [Concomitant]
     Active Substance: DOCUSATE
  3. MIRABEGRON [Concomitant]
     Active Substance: MIRABEGRON
     Dosage: HELD ON LAST ADMISSION, WAS TO BE REVIEWED ? PT HAS WITH HIM IN PODS AND SAYS HE^S STILL TAKING IT
  4. PEPTO?BISMOL [Concomitant]
     Active Substance: BISMUTH SUBSALICYLATE
  5. LACTULOSE. [Concomitant]
     Active Substance: LACTULOSE
     Dosage: 3.1?3.7G/5ML 10?15ML TWICE DAILY AS NEEDED
  6. COLECALCIFEROL [Concomitant]
     Active Substance: CHOLECALCIFEROL
     Dosage: TOOK AT BEGINNING OF JAN ACCORDING TO PREVIOUS DX
     Dates: start: 202101
  7. PARACETAMOL [Suspect]
     Active Substance: ACETAMINOPHEN
     Indication: PRODUCT USED FOR UNKNOWN INDICATION
     Dosage: 1000 MG, BID
     Route: 065
     Dates: start: 20200810
  8. BISOPROLOL [Concomitant]
     Active Substance: BISOPROLOL
     Dosage: POD DOSE INCREASED TO 10MG
  9. CAPASAL [Concomitant]
     Dosage: AS NEEDED
     Dates: start: 20200611
  10. WARFARIN [Concomitant]
     Active Substance: WARFARIN
     Indication: ATRIAL FIBRILLATION
     Dosage: 1MG AND 3MG, TARGET 2.5. DOSE: 5MG MON/FRI, 4MG REST OF WEEK.
  11. ZEROBASE [Concomitant]
     Active Substance: MINERAL OIL\PARAFFIN
     Dosage: AS NEEDED

REACTIONS (2)
  - Overdose [Unknown]
  - Hepatic failure [Unknown]
